FAERS Safety Report 4484096-7 (Version None)
Quarter: 2004Q4

REPORT INFORMATION
  Report Type: 
  Country: None (occurrence: None)
  Receive Date: 20041025
  Receipt Date: 20041012
  Transmission Date: 20050328
  Serious: Yes (Hospitalization)
  Sender: FDA-Public Use
  Company Number: DE-MERCK-0410DEU00398

PATIENT
  Age: 57 Year
  Sex: Female

DRUGS (8)
  1. VIOXX [Suspect]
     Indication: RHEUMATOID ARTHRITIS
     Route: 048
     Dates: start: 19990101
  2. VIOXX [Suspect]
     Indication: POLYSEROSITIS
     Route: 048
     Dates: start: 19990101
  3. METHOTREXATE [Concomitant]
     Indication: RHEUMATOID ARTHRITIS
     Route: 065
     Dates: start: 19990101
  4. METHOTREXATE [Concomitant]
     Route: 065
     Dates: start: 19990101
  5. METHOTREXATE [Concomitant]
     Indication: POLYSEROSITIS
     Route: 065
     Dates: start: 19990101
  6. METHOTREXATE [Concomitant]
     Route: 065
     Dates: start: 19990101
  7. CORTISONE [Concomitant]
     Indication: RHEUMATOID ARTHRITIS
     Route: 065
     Dates: start: 19990101
  8. CORTISONE [Concomitant]
     Indication: POLYSEROSITIS
     Route: 065
     Dates: start: 19990101

REACTIONS (19)
  - ATRIAL FIBRILLATION [None]
  - CARDIAC FAILURE [None]
  - DEPRESSION [None]
  - DYSPNOEA [None]
  - ERYTHEMA [None]
  - EYE REDNESS [None]
  - FALL [None]
  - FATIGUE [None]
  - GASTRITIS EROSIVE [None]
  - HERPES ZOSTER [None]
  - HYPERTENSION [None]
  - LUMBAR VERTEBRAL FRACTURE [None]
  - NERVE INJURY [None]
  - NERVOUSNESS [None]
  - PERICARDIAL EFFUSION [None]
  - PLEURAL EFFUSION [None]
  - PYREXIA [None]
  - TACHYCARDIA [None]
  - VERTIGO [None]
